FAERS Safety Report 9175186 (Version 1)
Quarter: 2013Q1

REPORT INFORMATION
  Report Type: Spontaneous
  Country: US (occurrence: None)
  Receive Date: 20130315
  Receipt Date: 20130315
  Transmission Date: 20140127
  Serious: Yes (Other)
  Sender: FDA-Public Use
  Company Number: ALK-2013-001346

PATIENT
  Age: 50 Year
  Sex: Female

DRUGS (1)
  1. VIVITROL (VIVITROL_NDA) INJECTION, 380 MG [Suspect]
     Indication: ALCOHOLISM
     Route: 030

REACTIONS (9)
  - Embolia cutis medicamentosa [None]
  - Injection site reaction [None]
  - Injection site necrosis [None]
  - Injection site pain [None]
  - Injection site swelling [None]
  - Injection site erythema [None]
  - Injection site induration [None]
  - Scar [None]
  - Injection site cellulitis [None]
